FAERS Safety Report 8256605-3 (Version None)
Quarter: 2012Q2

REPORT INFORMATION
  Report Type: 
  Country: None (occurrence: None)
  Receive Date: 20120403
  Receipt Date: 20120328
  Transmission Date: 20120825
  Serious: Yes (Death)
  Sender: FDA-Public Use
  Company Number: JP-CELGENEUS-087-50794-12033576

PATIENT
  Sex: Female
  Weight: 49 kg

DRUGS (20)
  1. COTRIM [Concomitant]
     Route: 065
     Dates: start: 20111116
  2. SOLU-MEDROL [Concomitant]
     Route: 065
     Dates: start: 20111130, end: 20111202
  3. CYCLOPHOSPHAMIDE [Concomitant]
     Route: 065
     Dates: start: 20111204, end: 20111204
  4. AMBISOME [Concomitant]
     Route: 065
     Dates: start: 20111204, end: 20111204
  5. MAXIPIME [Concomitant]
     Route: 065
     Dates: start: 20111204, end: 20111205
  6. VIDAZA [Suspect]
     Dosage: 100 MILLIGRAM
     Route: 041
     Dates: start: 20111027, end: 20111102
  7. GARENOXACIN MESYLATE [Concomitant]
     Route: 065
     Dates: start: 20111027, end: 20111114
  8. SOLU-MEDROL [Concomitant]
     Route: 065
     Dates: start: 20111114, end: 20111116
  9. GANCICLOVIR [Concomitant]
     Route: 065
     Dates: start: 20111204, end: 20111204
  10. MORPHINE SULFATE [Concomitant]
     Route: 065
     Dates: start: 20111204, end: 20111205
  11. ALFAROL [Concomitant]
     Route: 065
     Dates: start: 20111027, end: 20111203
  12. GLAKAY [Concomitant]
     Route: 065
     Dates: start: 20111027, end: 20111203
  13. LANSOPRAZOLE [Concomitant]
     Route: 065
     Dates: start: 20111114, end: 20111203
  14. KYTRIL [Concomitant]
     Route: 065
     Dates: start: 20111027, end: 20111102
  15. SOLU-MEDROL [Concomitant]
     Route: 065
     Dates: start: 20111121, end: 20111123
  16. PREDNISOLONE [Concomitant]
     Route: 065
     Dates: start: 20111124, end: 20111130
  17. FUNGUARD [Concomitant]
     Route: 065
     Dates: start: 20111118
  18. DIFLUCAN [Concomitant]
     Route: 065
     Dates: start: 20111027, end: 20111114
  19. PREDNISOLONE [Concomitant]
     Route: 065
     Dates: start: 20111117, end: 20111120
  20. PREDNISOLONE [Concomitant]
     Route: 065
     Dates: start: 20111203, end: 20111205

REACTIONS (1)
  - INTERSTITIAL LUNG DISEASE [None]
